FAERS Safety Report 9717187 (Version 2)
Quarter: 2014Q1

REPORT INFORMATION
  Report Type: Spontaneous
  Country: US (occurrence: None)
  Receive Date: 20131125
  Receipt Date: 20140325
  Transmission Date: 20141002
  Serious: Yes (Hospitalization)
  Sender: FDA-Public Use
  Company Number: 2013-US-003470

PATIENT
  Age: 19 Year
  Sex: Female

DRUGS (1)
  1. XYREM [Suspect]
     Indication: INSOMNIA
     Route: 048
     Dates: start: 201310, end: 2013

REACTIONS (2)
  - Urinary tract infection [None]
  - Off label use [None]
